FAERS Safety Report 9135486 (Version 1)
Quarter: 2013Q1

REPORT INFORMATION
  Report Type: Spontaneous
  Country: GB (occurrence: GB)
  Receive Date: 20130304
  Receipt Date: 20130304
  Transmission Date: 20140127
  Serious: Yes (Other)
  Sender: FDA-Public Use
  Company Number: PHHY2013GB019721

PATIENT
  Age: 55 Year
  Sex: Female

DRUGS (1)
  1. TRAMADOL [Suspect]
     Indication: POSTOPERATIVE ANALGESIA
     Dosage: 100 MG, UNK
     Route: 042
     Dates: start: 20130212, end: 20130212

REACTIONS (1)
  - Erythema [Recovered/Resolved]
